FAERS Safety Report 11422092 (Version 1)
Quarter: 2015Q3

REPORT INFORMATION
  Report Type: Spontaneous
  Country: US (occurrence: None)
  Receive Date: 20150826
  Receipt Date: 20150826
  Transmission Date: 20151125
  Serious: Yes (Other)
  Sender: FDA-Public Use
  Company Number: None

PATIENT
  Sex: Female

DRUGS (1)
  1. IBRANCE [Suspect]
     Active Substance: PALBOCICLIB
     Indication: BREAST CANCER
     Dosage: QD X 21 DAYS WITH 7 DAYS OFF
     Route: 048
     Dates: start: 201506

REACTIONS (6)
  - Nausea [None]
  - Fatigue [None]
  - Constipation [None]
  - Visual impairment [None]
  - Feeling abnormal [None]
  - Alopecia [None]
